FAERS Safety Report 4949812-6 (Version None)
Quarter: 2006Q1

REPORT INFORMATION
  Report Type: 
  Country: None (occurrence: None)
  Receive Date: 20060315
  Receipt Date: 20060307
  Transmission Date: 20060701
  Serious: Yes (Hospitalization, Other)
  Sender: FDA-Public Use
  Company Number: HQWYE171407MAR06

PATIENT
  Age: 85 Year
  Sex: Female

DRUGS (9)
  1. CEFIXIME CHEWABLE [Suspect]
     Indication: BRONCHITIS
     Dosage: 400 MG DAILY; ORAL
     Route: 048
     Dates: start: 20051231, end: 20060104
  2. MUCOMYST [Concomitant]
  3. IRBESARTAN [Concomitant]
  4. BISOPROLOL FUMARATE [Concomitant]
  5. ACETAMINOPHEN [Concomitant]
  6. CARBOSYLANE (CHARCOAL, ACTIVATED/CIMETICONE) [Concomitant]
  7. RHINOFLUIMUCIL (ACETYLCYSTEINE/BENZALKONIUM CHLORIDE/TUAMINOHEPTANE) [Concomitant]
  8. OXOMEMAZINE [Concomitant]
  9. IBUPROFEN [Concomitant]

REACTIONS (7)
  - ANAEMIA [None]
  - ASTHENIA [None]
  - CLOSTRIDIUM COLITIS [None]
  - INFLAMMATION [None]
  - LEUKOCYTOSIS [None]
  - PYREXIA [None]
  - WEIGHT DECREASED [None]
